FAERS Safety Report 8470608-5 (Version None)
Quarter: 2012Q2

REPORT INFORMATION
  Report Type: 
  Country: None (occurrence: None)
  Receive Date: 20120627
  Receipt Date: 20120622
  Transmission Date: 20120825
  Serious: Yes (Hospitalization)
  Sender: FDA-Public Use
  Company Number: PHHY2012JP050565

PATIENT
  Age: 10 Year
  Sex: Male

DRUGS (3)
  1. CYCLOSPORINE [Suspect]
     Indication: NEPHROTIC SYNDROME
     Route: 048
  2. PREDNISOLONE [Concomitant]
     Indication: NEPHROTIC SYNDROME
  3. MYCOPHENOLATE MOFETIL [Concomitant]
     Indication: NEPHROTIC SYNDROME

REACTIONS (16)
  - HEADACHE [None]
  - HYPERTENSIVE ENCEPHALOPATHY [None]
  - NEPHROTIC SYNDROME [None]
  - TACHYPNOEA [None]
  - COMA [None]
  - DYSKINESIA [None]
  - OEDEMA [None]
  - WEIGHT DECREASED [None]
  - RENAL FAILURE [None]
  - CARDIAC FAILURE [None]
  - POSTERIOR REVERSIBLE ENCEPHALOPATHY SYNDROME [None]
  - PROTEINURIA [None]
  - PERIPHERAL PULSE DECREASED [None]
  - ALTERED STATE OF CONSCIOUSNESS [None]
  - RESPIRATION ABNORMAL [None]
  - HYPERTENSION [None]
